FAERS Safety Report 22540444 (Version 1)
Quarter: 2023Q2

REPORT INFORMATION
  Report Type: Spontaneous
  Country: US (occurrence: US)
  Receive Date: 20230609
  Receipt Date: 20230609
  Transmission Date: 20230722
  Serious: No
  Sender: FDA-Public Use
  Company Number: US-SA-SAC20230608000282

PATIENT
  Age: 78 Year
  Sex: Male

DRUGS (1)
  1. DUPIXENT [Suspect]
     Active Substance: DUPILUMAB
     Dosage: 300 MG, FREQUENCY: OTHER
     Route: 058
     Dates: start: 20220715

REACTIONS (9)
  - Illness [Not Recovered/Not Resolved]
  - Headache [Unknown]
  - Pain [Unknown]
  - Muscle fatigue [Unknown]
  - Fatigue [Unknown]
  - Nausea [Unknown]
  - Abdominal pain upper [Unknown]
  - Oropharyngeal pain [Unknown]
  - Condition aggravated [Not Recovered/Not Resolved]

NARRATIVE: CASE EVENT DATE: 20220715
